FAERS Safety Report 23841325 (Version 1)
Quarter: 2024Q2

REPORT INFORMATION
  Report Type: Spontaneous
  Country: US (occurrence: None)
  Receive Date: 20240509
  Receipt Date: 20240509
  Transmission Date: 20240716
  Serious: No
  Sender: FDA-Public Use
  Company Number: None

PATIENT
  Age: 67 Year
  Sex: Female

DRUGS (1)
  1. AMBRISENTAN [Suspect]
     Active Substance: AMBRISENTAN
     Indication: Pulmonary hypertension
     Dosage: FREQUENCY : DAILY;?
     Route: 048
     Dates: start: 20140324

REACTIONS (5)
  - Respiratory failure [None]
  - Pulmonary mass [None]
  - Acute kidney injury [None]
  - Hypoxia [None]
  - Pericardial effusion [None]

NARRATIVE: CASE EVENT DATE: 20240427
